FAERS Safety Report 16807495 (Version 1)
Quarter: 2019Q3

REPORT INFORMATION
  Report Type: Spontaneous
  Country: US (occurrence: US)
  Receive Date: 20190913
  Receipt Date: 20190913
  Transmission Date: 20191005
  Serious: No
  Sender: FDA-Public Use
  Company Number: US-SHIRE-US201929895

PATIENT
  Sex: Male

DRUGS (1)
  1. NATPARA (PARATHYROID HORMONE) [Suspect]
     Active Substance: PARATHYROID HORMONE
     Indication: HYPOPARATHYROIDISM
     Dosage: 500 UNK, 1X/DAY:QD
     Route: 065
     Dates: start: 20190628

REACTIONS (2)
  - Hot flush [Not Recovered/Not Resolved]
  - Skin mass [Not Recovered/Not Resolved]
